FAERS Safety Report 4825445-7 (Version None)
Quarter: 2005Q4

REPORT INFORMATION
  Report Type: 
  Country: None (occurrence: None)
  Receive Date: 20051111
  Receipt Date: 20051107
  Transmission Date: 20060501
  Serious: Yes (Death)
  Sender: FDA-Public Use
  Company Number: PHHO2005JP17554

PATIENT
  Age: 58 Year
  Sex: Male

DRUGS (6)
  1. LOCHOL [Suspect]
     Indication: HYPERCHOLESTEROLAEMIA
     Dosage: 20 MG, QD
     Route: 048
     Dates: start: 20010305
  2. ROHYPNOL [Concomitant]
     Dates: start: 20000704
  3. VITAMIN A [Concomitant]
     Dates: start: 20000704
  4. VEGETAMIN B [Concomitant]
     Dates: start: 20000704
  5. DOGMATYL [Concomitant]
     Dates: start: 20000704
  6. NEUER [Concomitant]
     Dates: start: 20000704

REACTIONS (1)
  - SUDDEN DEATH [None]
